FAERS Safety Report 18926868 (Version 1)
Quarter: 2021Q1

REPORT INFORMATION
  Report Type: Report from Study
  Country: US (occurrence: US)
  Receive Date: 20210223
  Receipt Date: 20210223
  Transmission Date: 20210420
  Serious: Yes (Other)
  Sender: FDA-Public Use
  Company Number: US-BIOVITRUM-2020US7763

PATIENT
  Age: 56 Year
  Sex: Female

DRUGS (2)
  1. KINERET [Suspect]
     Active Substance: ANAKINRA
     Indication: SCLERITIS
     Route: 058
     Dates: start: 20190417
  2. KINERET [Suspect]
     Active Substance: ANAKINRA
     Indication: LUPUS-LIKE SYNDROME

REACTIONS (2)
  - COVID-19 [Recovering/Resolving]
  - Off label use [Not Recovered/Not Resolved]

NARRATIVE: CASE EVENT DATE: 20190417
